FAERS Safety Report 8061892 (Version 3)
Quarter: 2012Q4

REPORT INFORMATION
  Report Type: 
  Country: US (occurrence: US)
  Receive Date: 20110729
  Receipt Date: 20121018
  Transmission Date: 20130627
  Serious: No
  Sender: FDA-Public Use
  Company Number: US-B.I. PHARMACEUTICALS,INC./RIDGEFIELD-2011-BP-17665BP

PATIENT
  Age: 81 None
  Sex: Female

DRUGS (12)
  1. SPIRIVA HANDIHALER [Suspect]
     Indication: ASTHMA
     Dosage: 18 mcg
     Route: 055
     Dates: start: 2008
  2. SPIRIVA HANDIHALER [Suspect]
     Indication: EMPHYSEMA
     Dosage: 54 mcg
     Dates: start: 20121008, end: 20121008
  3. DIGOXIN [Concomitant]
     Indication: ATRIAL FIBRILLATION
     Dosage: 0.25 mg
     Route: 048
     Dates: start: 2010
  4. COUMADIN [Concomitant]
     Indication: ATRIAL FIBRILLATION
     Dosage: 4 mg
     Route: 048
     Dates: start: 2010
  5. PREDNISONE [Concomitant]
     Indication: VIRAL INFECTION
     Dosage: 20 mg
     Route: 048
  6. LOSARTAN [Concomitant]
     Indication: HYPERTENSION
     Dosage: 100 mg
     Route: 048
  7. PROTONIX [Concomitant]
     Indication: PROPHYLAXIS
     Dosage: 40 mg
     Route: 048
  8. LASIX [Concomitant]
     Indication: HEART VALVE INCOMPETENCE
     Route: 048
  9. KCL [Concomitant]
     Indication: ELECTROLYTE SUBSTITUTION THERAPY
     Route: 048
  10. XOPENEX [Concomitant]
     Indication: ASTHMA
     Route: 055
     Dates: start: 1980
  11. PRO-AIR [Concomitant]
     Indication: ASTHMA
     Route: 055
     Dates: start: 1980
  12. QVAR [Concomitant]
     Indication: ASTHMA
     Route: 055
     Dates: start: 1980

REACTIONS (10)
  - Pruritus [Not Recovered/Not Resolved]
  - Photosensitivity reaction [Not Recovered/Not Resolved]
  - Skin burning sensation [Not Recovered/Not Resolved]
  - Dysuria [Not Recovered/Not Resolved]
  - Micturition urgency [Not Recovered/Not Resolved]
  - Bladder discomfort [Not Recovered/Not Resolved]
  - Product quality issue [Recovered/Resolved]
  - Dysphonia [Not Recovered/Not Resolved]
  - Product quality issue [Recovered/Resolved]
  - Medication error [Recovered/Resolved]
